FAERS Safety Report 18351572 (Version 2)
Quarter: 2020Q4

REPORT INFORMATION
  Report Type: Report from Study
  Country: BR (occurrence: BR)
  Receive Date: 20201007
  Receipt Date: 20201015
  Transmission Date: 20210114
  Serious: Yes (Other)
  Sender: FDA-Public Use
  Company Number: BR-EMD SERONO-9188766

PATIENT
  Age: 50 Year
  Sex: Male

DRUGS (1)
  1. REBIF [Suspect]
     Active Substance: INTERFERON BETA-1A
     Indication: MULTIPLE SCLEROSIS
     Route: 058
     Dates: start: 20071010

REACTIONS (3)
  - Pain [Unknown]
  - Aspartate aminotransferase increased [Recovering/Resolving]
  - Appendicitis [Recovered/Resolved]

NARRATIVE: CASE EVENT DATE: 201911
